FAERS Safety Report 15465337 (Version 1)
Quarter: 2018Q4

REPORT INFORMATION
  Report Type: Report from Study
  Country: JP (occurrence: JP)
  Receive Date: 20181004
  Receipt Date: 20181004
  Transmission Date: 20190204
  Serious: Yes (Hospitalization, Other)
  Sender: FDA-Public Use
  Company Number: JP-SUCAMPO PHARMACEUTICALS INC.-SPI201800818

PATIENT

DRUGS (19)
  1. TRAMCET [Concomitant]
     Active Substance: ACETAMINOPHEN\TRAMADOL
     Indication: MIGRAINE
     Dosage: UNK
     Route: 048
  2. PENTASA [Concomitant]
     Active Substance: MESALAMINE
     Dosage: UNK
     Route: 048
     Dates: start: 20180719, end: 20180913
  3. CAMOSTAT MESILATE [Concomitant]
     Active Substance: CAMOSTAT MESYLATE
     Indication: GASTROOESOPHAGEAL REFLUX PROPHYLAXIS
     Dosage: UNK
     Route: 048
     Dates: start: 20180719, end: 20180913
  4. SILECE [Concomitant]
     Active Substance: FLUNITRAZEPAM
     Indication: DEPRESSION
     Dosage: UNK
     Route: 048
  5. MAGMITT [Concomitant]
     Active Substance: MAGNESIUM OXIDE
     Indication: GASTROINTESTINAL MOTILITY DISORDER
     Dosage: UNK
     Route: 048
     Dates: start: 20180821, end: 20180913
  6. AMITIZA [Suspect]
     Active Substance: LUBIPROSTONE
     Indication: SMALL INTESTINE ULCER
     Dosage: 12 MCG, QD
     Route: 048
     Dates: start: 20180702
  7. RABEPRAZOLE NA [Concomitant]
     Active Substance: RABEPRAZOLE SODIUM
     Indication: GASTRITIS PROPHYLAXIS
     Dosage: UNK
     Route: 048
  8. PENTASA [Concomitant]
     Active Substance: MESALAMINE
     Indication: SMALL INTESTINE ULCER
     Dosage: UNK
     Route: 048
     Dates: end: 20180710
  9. FOIPAN [Concomitant]
     Active Substance: CAMOSTAT MESYLATE
     Dosage: UNK
     Route: 048
     Dates: start: 20180719
  10. FUROSEMIDE. [Concomitant]
     Active Substance: FUROSEMIDE
     Dosage: UNK
     Route: 048
  11. LIXIANA [Concomitant]
     Active Substance: EDOXABAN TOSYLATE
     Indication: THROMBOSIS PROPHYLAXIS
     Dosage: UNK
     Route: 048
  12. REFLEX                             /01293201/ [Concomitant]
     Active Substance: MIRTAZAPINE
     Indication: DEPRESSION
     Dosage: UNK
     Route: 048
  13. MIYA-BM [Concomitant]
     Active Substance: CLOSTRIDIUM BUTYRICUM SPORES STRAIN M-55
     Dosage: UNK
     Route: 048
     Dates: end: 20180710
  14. FOIPAN [Concomitant]
     Active Substance: CAMOSTAT MESYLATE
     Indication: GASTROOESOPHAGEAL REFLUX PROPHYLAXIS
     Dosage: UNK
     Route: 048
     Dates: end: 20180710
  15. MIGSIS [Concomitant]
     Active Substance: LOMERIZINE HYDROCHLORIDE
     Indication: MIGRAINE
     Dosage: UNK
     Route: 048
  16. ALBUMIN [Concomitant]
     Active Substance: ALBUMIN HUMAN
     Dosage: UNK
  17. FESIN                              /00023550/ [Concomitant]
     Active Substance: IRON SUCROSE
     Indication: ANAEMIA
     Dosage: UNK
     Route: 041
  18. ABILIFY [Concomitant]
     Active Substance: ARIPIPRAZOLE
     Indication: DEPRESSION
     Dosage: UNK
     Route: 048
  19. MIYA-BM [Concomitant]
     Active Substance: CLOSTRIDIUM BUTYRICUM SPORES STRAIN M-55
     Dosage: UNK
     Route: 048
     Dates: start: 20180719, end: 20180913

REACTIONS (20)
  - Small intestine ulcer [Recovered/Resolved]
  - Hypoalbuminaemia [Recovered/Resolved]
  - Condition aggravated [Recovering/Resolving]
  - Gastrointestinal oedema [Unknown]
  - Face oedema [Unknown]
  - Nausea [Recovered/Resolved]
  - Abdominal pain [Unknown]
  - Small intestine ulcer [Recovering/Resolving]
  - Pyrexia [Recovered/Resolved]
  - Oedema peripheral [Recovering/Resolving]
  - Malaise [Unknown]
  - Condition aggravated [Recovered/Resolved]
  - Abdominal distension [Unknown]
  - Movement disorder [Unknown]
  - Off label use [Unknown]
  - Generalised oedema [Recovering/Resolving]
  - Eyelid oedema [Recovering/Resolving]
  - Vomiting [Recovered/Resolved]
  - Back pain [Recovered/Resolved]
  - Constipation [Recovered/Resolved]

NARRATIVE: CASE EVENT DATE: 20180702
